FAERS Safety Report 16639659 (Version 4)
Quarter: 2020Q3

REPORT INFORMATION
  Report Type: Report from Study
  Country: CA (occurrence: CA)
  Receive Date: 20190727
  Receipt Date: 20200722
  Transmission Date: 20201102
  Serious: Yes (Disabling)
  Sender: FDA-Public Use
  Company Number: CA-AMGEN-CANNI2019120056

PATIENT
  Age: 63 Year
  Sex: Male

DRUGS (3)
  1. AIMOVIG [Suspect]
     Active Substance: ERENUMAB-AOOE
     Dosage: UNK
     Route: 065
     Dates: start: 20200626
  2. AIMOVIG [Suspect]
     Active Substance: ERENUMAB-AOOE
     Indication: MIGRAINE
     Dosage: UNK
     Route: 065
     Dates: start: 20190430
  3. AIMOVIG [Suspect]
     Active Substance: ERENUMAB-AOOE
     Dosage: 70 MG, QMO
     Route: 058
     Dates: start: 20190508

REACTIONS (5)
  - Decreased interest [Not Recovered/Not Resolved]
  - Hypoacusis [Unknown]
  - Stress [Unknown]
  - Depression [Not Recovered/Not Resolved]
  - Migraine [Unknown]
